FAERS Safety Report 20792799 (Version 4)
Quarter: 2022Q3

REPORT INFORMATION
  Report Type: Report from Study
  Country: US (occurrence: US)
  Receive Date: 20220506
  Receipt Date: 20220805
  Transmission Date: 20221026
  Serious: Yes (Hospitalization, Other)
  Sender: FDA-Public Use
  Company Number: US-CELGENE-USA-20220206761

PATIENT
  Age: 62 Year
  Sex: Male
  Weight: 119.7 kg

DRUGS (6)
  1. REVLIMID [Suspect]
     Active Substance: LENALIDOMIDE
     Indication: Plasma cell myeloma
     Dosage: START DATE: 16-APR-2022; 1 CAPSULE, BY MOUTH, DAILY DAY 1 THROUGH 21 OF EACH 28 DAY CYCLE. TAKE AT T
     Route: 048
  2. REVLIMID [Suspect]
     Active Substance: LENALIDOMIDE
     Dosage: 25 MILLIGRAM
     Route: 048
     Dates: start: 202104
  3. REVLIMID [Suspect]
     Active Substance: LENALIDOMIDE
     Dosage: 10 MILLIGRAM, 21/28 DAYS
     Route: 048
     Dates: start: 202112
  4. REVLIMID [Suspect]
     Active Substance: LENALIDOMIDE
     Route: 065
  5. REVLIMID [Suspect]
     Active Substance: LENALIDOMIDE
     Dosage: 1/21 OR 28 DAYS
     Route: 048
     Dates: start: 20210413
  6. VELCADE [Suspect]
     Active Substance: BORTEZOMIB
     Indication: Plasma cell myeloma
     Route: 058
     Dates: start: 20210413

REACTIONS (8)
  - Inguinal hernia [Unknown]
  - Blood pressure abnormal [Unknown]
  - COVID-19 [Recovered/Resolved]
  - Blood potassium decreased [Unknown]
  - Herpes zoster [Recovered/Resolved]
  - Diarrhoea [Recovering/Resolving]
  - Weight decreased [Unknown]
  - Hypotension [Unknown]

NARRATIVE: CASE EVENT DATE: 20220128
